APPROVED DRUG PRODUCT: BUTALBITAL, ACETAMINOPHEN AND CAFFEINE
Active Ingredient: ACETAMINOPHEN; BUTALBITAL; CAFFEINE
Strength: 300MG;50MG;40MG
Dosage Form/Route: CAPSULE;ORAL
Application: A215047 | Product #001 | TE Code: AA
Applicant: NOVAST LABORATORIES LTD
Approved: Nov 17, 2021 | RLD: No | RS: No | Type: RX